FAERS Safety Report 9638873 (Version 1)
Quarter: 2013Q4

REPORT INFORMATION
  Report Type: Spontaneous
  Country: US (occurrence: US)
  Receive Date: 20131022
  Receipt Date: 20131022
  Transmission Date: 20140711
  Serious: No
  Sender: FDA-Public Use
  Company Number: US-BRISTOL-MYERS SQUIBB COMPANY-19128644

PATIENT
  Age: 86 Year
  Sex: Male

DRUGS (5)
  1. ELIQUIS [Suspect]
     Dosage: DOSE REDUCED TO 2.5MG
     Dates: start: 20130419, end: 20130701
  2. PLAVIX [Suspect]
  3. ASPIRIN [Concomitant]
  4. CRESTOR [Concomitant]
  5. ATENOLOL [Concomitant]

REACTIONS (1)
  - Dizziness [Not Recovered/Not Resolved]
